FAERS Safety Report 13649590 (Version 1)
Quarter: 2017Q2

REPORT INFORMATION
  Report Type: Spontaneous
  Country: MX (occurrence: MX)
  Receive Date: 20170614
  Receipt Date: 20170614
  Transmission Date: 20170830
  Serious: Yes (Hospitalization, Other)
  Sender: FDA-Public Use
  Company Number: MX-MACLEODS PHARMACEUTICALS US LTD-MAC2017005157

PATIENT

DRUGS (7)
  1. NIFEDIPINE. [Interacting]
     Active Substance: NIFEDIPINE
     Indication: HYPERTENSION
     Dosage: 20 MG, TID
     Route: 065
  2. QUETIAPINE. [Suspect]
     Active Substance: QUETIAPINE
     Indication: DEPRESSION
     Dosage: 300 MG, QD
     Route: 065
  3. PIRACETAM [Concomitant]
     Active Substance: PIRACETAM
     Indication: DEPRESSION
     Dosage: UNK
     Route: 065
  4. DESVENLAFAXINE. [Interacting]
     Active Substance: DESVENLAFAXINE
     Indication: DEPRESSION
     Dosage: 50 MG, QD
     Route: 065
  5. LEVETIRACETAM. [Interacting]
     Active Substance: LEVETIRACETAM
     Indication: DEPRESSION
     Dosage: 500 MG, BID
     Route: 065
  6. ATORVASTATIN 10 MG [Concomitant]
     Active Substance: ATORVASTATIN
     Indication: DYSLIPIDAEMIA
     Dosage: 10 MG, QD
     Route: 065
  7. RALOXIFENE. [Concomitant]
     Active Substance: RALOXIFENE
     Indication: DEPRESSION
     Dosage: 60 MG, QD
     Route: 065

REACTIONS (14)
  - Gastrointestinal sounds abnormal [Recovered/Resolved]
  - Constipation [Recovered/Resolved]
  - Dehydration [Recovered/Resolved]
  - Pneumatosis [Recovered/Resolved]
  - Leukopenia [Recovered/Resolved]
  - Large intestine perforation [Recovered/Resolved]
  - Colonic pseudo-obstruction [Recovered/Resolved]
  - Abdominal distension [Recovered/Resolved]
  - Drug interaction [Recovered/Resolved]
  - Abdominal tenderness [Recovered/Resolved]
  - Pyrexia [Recovered/Resolved]
  - Haemodynamic instability [Recovered/Resolved]
  - Abdominal pain [Recovered/Resolved]
  - Tachycardia [Recovered/Resolved]
